FAERS Safety Report 19073961 (Version 1)
Quarter: 2021Q1

REPORT INFORMATION
  Report Type: Spontaneous
  Country: JP (occurrence: JP)
  Receive Date: 20210330
  Receipt Date: 20210330
  Transmission Date: 20210420
  Serious: Yes (Other)
  Sender: FDA-Public Use
  Company Number: JP-HQ SPECIALTY-JP-2021INT000048

PATIENT
  Sex: Female

DRUGS (2)
  1. DEXMEDETOMIDINE HYDROCHLORIDE. [Suspect]
     Active Substance: DEXMEDETOMIDINE HYDROCHLORIDE
     Indication: SEDATIVE THERAPY
     Dosage: 200 UG/50 ML AT 5 ML/HR (APPROX. 0.4 UG/KG/HR) (5 ML,1 HR)
     Route: 065
  2. DEXMEDETOMIDINE HYDROCHLORIDE. [Suspect]
     Active Substance: DEXMEDETOMIDINE HYDROCHLORIDE
     Dosage: REDUCED DOSAGE (2 ML,1 HR)
     Route: 065

REACTIONS (1)
  - Atrioventricular block complete [Recovered/Resolved]
